FAERS Safety Report 7597803-1 (Version None)
Quarter: 2011Q3

REPORT INFORMATION
  Report Type: 
  Country: None (occurrence: None)
  Receive Date: 20110708
  Receipt Date: 20110705
  Transmission Date: 20111222
  Serious: Yes (Hospitalization, Other)
  Sender: FDA-Public Use
  Company Number: FR-PFIZER INC-2011149485

PATIENT
  Age: 77 Year
  Sex: Male

DRUGS (7)
  1. ATORVASTATIN CALCIUM [Suspect]
     Dosage: 80 MG, 1X/DAY
     Route: 048
     Dates: start: 20091201, end: 20100101
  2. PLAVIX [Suspect]
     Dosage: 75 MG, 1X/DAY
     Route: 048
     Dates: start: 20091201, end: 20100101
  3. IKOREL [Concomitant]
     Indication: ISCHAEMIC CARDIOMYOPATHY
     Route: 048
  4. NEBIVOLOL HCL [Suspect]
     Dosage: 2.5 MG, 1X/DAY
     Route: 048
     Dates: start: 20091201, end: 20100101
  5. COLCHICINE [Suspect]
     Dosage: 1 DF, 1X/DAY
     Route: 048
     Dates: start: 20100101
  6. RASILEZ [Suspect]
     Dosage: 300 MG, 1X/DAY
     Route: 048
     Dates: start: 20091201, end: 20100101
  7. ATORVASTATIN CALCIUM [Suspect]
     Dosage: 20 MG, 1X/DAY
     Dates: end: 20091101

REACTIONS (7)
  - GASTROINTESTINAL DISORDER [None]
  - MYOCARDIAL ISCHAEMIA [None]
  - MIXED LIVER INJURY [None]
  - WEIGHT DECREASED [None]
  - BLOOD CREATININE INCREASED [None]
  - DIARRHOEA [None]
  - ABDOMINAL PAIN [None]
